FAERS Safety Report 13523304 (Version 1)
Quarter: 2017Q2

REPORT INFORMATION
  Report Type: Spontaneous
  Country: DE (occurrence: DE)
  Receive Date: 20170508
  Receipt Date: 20170508
  Transmission Date: 20170830
  Serious: Yes (Hospitalization)
  Sender: FDA-Public Use
  Company Number: DE-TEVA-764286GER

PATIENT
  Sex: Female

DRUGS (2)
  1. CYCLOPHOSPHAMIDE. [Suspect]
     Active Substance: CYCLOPHOSPHAMIDE
     Indication: CHEMOTHERAPY
     Route: 065
     Dates: start: 2013, end: 2013
  2. DOXORUBICINHYDROCHLORID-TEVA [Suspect]
     Active Substance: DOXORUBICIN HYDROCHLORIDE
     Indication: CHEMOTHERAPY
     Dosage: 4 CYCLES WITH 60 MG/M2, CUMULATIVE DOSE: 240 MG/M2
     Route: 065
     Dates: start: 2013, end: 2013

REACTIONS (2)
  - Multiple organ dysfunction syndrome [Recovered/Resolved]
  - Cardiomyopathy [Recovered/Resolved with Sequelae]

NARRATIVE: CASE EVENT DATE: 2013
